FAERS Safety Report 6373755-7 (Version None)
Quarter: 2009Q3

REPORT INFORMATION
  Report Type: 
  Country: None (occurrence: None)
  Receive Date: 20090924
  Receipt Date: 20090505
  Transmission Date: 20100115
  Serious: No
  Sender: FDA-Public Use
  Company Number: US-ASTRAZENECA-2009UW11449

PATIENT
  Age: 40 Year
  Sex: Female
  Weight: 70.3 kg

DRUGS (7)
  1. SEROQUEL [Suspect]
     Indication: BIPOLAR DISORDER
     Route: 048
     Dates: start: 20010101
  2. SEROQUEL [Suspect]
     Indication: SCHIZOAFFECTIVE DISORDER
     Route: 048
     Dates: start: 20010101
  3. ABILIFY [Concomitant]
  4. ZOLOFT [Concomitant]
  5. CLONIPINE [Concomitant]
  6. AMBIEN [Concomitant]
  7. LAMACTIL [Concomitant]

REACTIONS (2)
  - ALOPECIA [None]
  - WEIGHT INCREASED [None]
